FAERS Safety Report 10019184 (Version 1)
Quarter: 2014Q1

REPORT INFORMATION
  Report Type: Report from Study
  Country: CN (occurrence: CN)
  Receive Date: 20140318
  Receipt Date: 20140318
  Transmission Date: 20141002
  Serious: Yes (Death)
  Sender: FDA-Public Use
  Company Number: CN-B.I. PHARMACEUTICALS,INC./RIDGEFIELD-2014-BI-11097GD

PATIENT
  Sex: 0

DRUGS (4)
  1. DIPYRIDAMOLE [Suspect]
     Indication: HENOCH-SCHONLEIN PURPURA NEPHRITIS
     Dosage: 150 MG
     Route: 065
  2. DIPYRIDAMOLE [Suspect]
     Indication: PROTEINURIA
  3. PREDNISONE [Suspect]
     Indication: HENOCH-SCHONLEIN PURPURA NEPHRITIS
     Route: 048
  4. PREDNISONE [Suspect]
     Indication: PROTEINURIA

REACTIONS (1)
  - Cerebrovascular accident [Fatal]
